FAERS Safety Report 20893513 (Version 1)
Quarter: 2022Q2

REPORT INFORMATION
  Report Type: Spontaneous
  Country: GB (occurrence: GB)
  Receive Date: 20220531
  Receipt Date: 20220531
  Transmission Date: 20220721
  Serious: Yes (Death, Hospitalization, Other)
  Sender: FDA-Public Use
  Company Number: GB-ROCHE-3093977

PATIENT
  Age: 55 Year
  Sex: Female

DRUGS (51)
  1. CAPECITABINE [Suspect]
     Active Substance: CAPECITABINE
     Indication: Breast cancer
     Route: 048
     Dates: start: 20201020
  2. DOCETAXEL [Suspect]
     Active Substance: DOCETAXEL
     Indication: Breast cancer
     Route: 042
     Dates: start: 20170525, end: 20170525
  3. ERIBULIN MESYLATE [Suspect]
     Active Substance: ERIBULIN MESYLATE
     Indication: Breast cancer
     Route: 042
     Dates: start: 20200611, end: 20200820
  4. NERATINIB [Suspect]
     Active Substance: NERATINIB
     Indication: Breast cancer
     Route: 048
     Dates: start: 20200919, end: 20201104
  5. PERTUZUMAB [Suspect]
     Active Substance: PERTUZUMAB
     Indication: Breast cancer
     Route: 042
     Dates: start: 20170614, end: 20190327
  6. PERTUZUMAB [Suspect]
     Active Substance: PERTUZUMAB
     Route: 042
     Dates: start: 20170524, end: 20170524
  7. TRASTUZUMAB [Suspect]
     Active Substance: TRASTUZUMAB
     Indication: Breast cancer
     Route: 041
     Dates: start: 20180516, end: 20190327
  8. TRASTUZUMAB [Suspect]
     Active Substance: TRASTUZUMAB
     Route: 041
     Dates: start: 20170614, end: 20180425
  9. TRASTUZUMAB [Suspect]
     Active Substance: TRASTUZUMAB
     Route: 041
     Dates: start: 20170524, end: 20170524
  10. ADO-TRASTUZUMAB EMTANSINE [Suspect]
     Active Substance: ADO-TRASTUZUMAB EMTANSINE
     Indication: Breast cancer
     Route: 042
     Dates: start: 20190427, end: 20190606
  11. ADO-TRASTUZUMAB EMTANSINE [Suspect]
     Active Substance: ADO-TRASTUZUMAB EMTANSINE
     Route: 042
     Dates: start: 20190829, end: 20200326
  12. ADO-TRASTUZUMAB EMTANSINE [Suspect]
     Active Substance: ADO-TRASTUZUMAB EMTANSINE
     Route: 042
     Dates: start: 20190627, end: 20190718
  13. PACLITAXEL [Suspect]
     Active Substance: PACLITAXEL
     Indication: Breast cancer
     Route: 042
     Dates: start: 20170705
  14. PACLITAXEL [Suspect]
     Active Substance: PACLITAXEL
     Route: 042
  15. PACLITAXEL [Suspect]
     Active Substance: PACLITAXEL
     Route: 042
     Dates: start: 20170614
  16. AMITRIPTYLINE [Concomitant]
     Active Substance: AMITRIPTYLINE
     Indication: Depressed mood
     Dosage: UNK
     Route: 065
  17. AMITRIPTYLINE [Concomitant]
     Active Substance: AMITRIPTYLINE
     Route: 048
     Dates: start: 20190827, end: 20190919
  18. AZTREONAM [Concomitant]
     Active Substance: AZTREONAM
     Indication: Product contamination microbial
     Dosage: UNK
     Route: 042
     Dates: start: 20201028, end: 20201104
  19. CEFTRIAXONE [Concomitant]
     Active Substance: CEFTRIAXONE
     Indication: Product contamination microbial
     Route: 042
  20. CEFTRIAXONE [Concomitant]
     Active Substance: CEFTRIAXONE
     Route: 048
     Dates: start: 20200928, end: 20201012
  21. CEFUROXIME [Concomitant]
     Active Substance: CEFUROXIME
     Indication: Product contamination microbial
     Route: 048
     Dates: start: 20201028
  22. CEFUROXIME [Concomitant]
     Active Substance: CEFUROXIME
     Route: 048
     Dates: start: 20200925, end: 20201019
  23. CETIRIZINE [Concomitant]
     Active Substance: CETIRIZINE HYDROCHLORIDE
     Indication: Urticaria papular
     Route: 048
     Dates: start: 20190313, end: 2019
  24. CHLORHEXIDINE GLUCONATE [Concomitant]
     Active Substance: CHLORHEXIDINE GLUCONATE
     Indication: Product used for unknown indication
     Dosage: UNK
     Route: 065
  25. CHLORHEXIDINE GLUCONATE [Concomitant]
     Active Substance: CHLORHEXIDINE GLUCONATE
     Route: 061
     Dates: start: 20170525, end: 2017
  26. CHLORPHENIRAMINE MALEATE [Concomitant]
     Active Substance: CHLORPHENIRAMINE MALEATE
     Indication: Product used for unknown indication
     Dosage: 4 MG
     Route: 048
     Dates: start: 20170526, end: 20170530
  27. CIPROFLOXACIN [Concomitant]
     Active Substance: CIPROFLOXACIN
     Indication: Abdominal pain upper
     Dosage: UNK
     Route: 065
     Dates: start: 20200707, end: 20200707
  28. CIPROFLOXACIN [Concomitant]
     Active Substance: CIPROFLOXACIN
     Indication: Cholecystitis acute
     Dosage: UNK
     Route: 065
     Dates: start: 20200909, end: 20200916
  29. CLOBETASOL PROPIONATE [Concomitant]
     Active Substance: CLOBETASOL PROPIONATE
     Indication: Product used for unknown indication
     Dosage: 0.05 % 0.5 DAY
     Route: 061
     Dates: start: 20170210, end: 201708
  30. CLOBETASOL [Concomitant]
     Active Substance: CLOBETASOL
     Indication: Product used for unknown indication
     Dosage: 0.5 %
     Route: 061
     Dates: start: 20170210, end: 201708
  31. DOMPERIDONE [Concomitant]
     Active Substance: DOMPERIDONE
     Indication: Product used for unknown indication
     Dosage: 10 MG 0.33 DAY
     Route: 048
     Dates: start: 20170523, end: 20170526
  32. CYCLOSPORINE [Concomitant]
     Active Substance: CYCLOSPORINE
     Indication: Blepharitis
     Dosage: UNK
     Route: 047
     Dates: start: 201708, end: 2018
  33. LANSOPRAZOLE [Concomitant]
     Active Substance: LANSOPRAZOLE
     Indication: Gastritis
     Route: 048
     Dates: start: 20190730, end: 202010
  34. LOPERAMIDE [Concomitant]
     Active Substance: LOPERAMIDE
     Indication: Product used for unknown indication
     Route: 048
     Dates: start: 20170613, end: 20201113
  35. ACETAMINOPHEN [Concomitant]
     Active Substance: ACETAMINOPHEN
     Indication: Product used for unknown indication
     Route: 048
     Dates: start: 20170525
  36. ARTIFICIAL SALIVA [Concomitant]
     Indication: Product used for unknown indication
     Dosage: UNK (1 SPRAY)
     Route: 060
     Dates: start: 20170526, end: 2017
  37. SANDO-K [Concomitant]
     Indication: Product used for unknown indication
     Route: 048
     Dates: start: 20170525, end: 20170529
  38. TEICOPLANIN [Concomitant]
     Active Substance: TEICOPLANIN
     Indication: Biliary sepsis
     Dosage: UNK
     Route: 042
     Dates: start: 20200925, end: 20200925
  39. TEICOPLANIN [Concomitant]
     Active Substance: TEICOPLANIN
     Indication: Product contamination microbial
     Dosage: UNK
     Route: 042
     Dates: start: 20200502, end: 20200515
  40. TEICOPLANIN [Concomitant]
     Active Substance: TEICOPLANIN
     Dosage: UNK
     Route: 042
     Dates: start: 20201028, end: 20201104
  41. TINZAPARIN [Concomitant]
     Active Substance: TINZAPARIN
     Indication: Product used for unknown indication
     Route: 058
     Dates: start: 20190916, end: 20191008
  42. TINZAPARIN [Concomitant]
     Active Substance: TINZAPARIN
     Dosage: UNK
     Route: 058
     Dates: start: 20170713, end: 20190723
  43. TRANEXAMIC ACID [Concomitant]
     Active Substance: TRANEXAMIC ACID
     Indication: Duodenal ulcer
     Dosage: 1 G
     Route: 048
     Dates: start: 20201112, end: 20201113
  44. TRANEXAMIC ACID [Concomitant]
     Active Substance: TRANEXAMIC ACID
     Indication: Coagulopathy
     Dosage: UNK
     Route: 065
     Dates: start: 20190722, end: 201907
  45. TRANEXAMIC ACID [Concomitant]
     Active Substance: TRANEXAMIC ACID
     Dosage: 1 G, TID
     Route: 048
     Dates: start: 20201111, end: 20201112
  46. VANCOMYCIN [Concomitant]
     Active Substance: VANCOMYCIN
     Indication: Clostridium difficile infection
     Dosage: 500 MG
     Route: 048
     Dates: start: 20201104, end: 20201113
  47. VANCOMYCIN [Concomitant]
     Active Substance: VANCOMYCIN
     Dosage: 125 MG
     Route: 048
     Dates: start: 20201030, end: 20201104
  48. ZOLEDRONIC ACID [Concomitant]
     Active Substance: ZOLEDRONIC ACID
     Indication: Product used for unknown indication
     Route: 042
     Dates: start: 20170525, end: 20201022
  49. CALCIUM\CHOLECALCIFEROL [Concomitant]
     Active Substance: CALCIUM\CHOLECALCIFEROL
  50. FUSIDIC ACID [Concomitant]
     Active Substance: FUSIDIC ACID
  51. METRONIDAZOLE [Concomitant]
     Active Substance: METRONIDAZOLE

REACTIONS (3)
  - Abdominal pain [Not Recovered/Not Resolved]
  - Pyrexia [Recovered/Resolved]
  - Disease progression [Fatal]

NARRATIVE: CASE EVENT DATE: 20200724
